FAERS Safety Report 15332767 (Version 1)
Quarter: 2018Q3

REPORT INFORMATION
  Report Type: Other
  Country: TH (occurrence: TH)
  Receive Date: 20180830
  Receipt Date: 20180830
  Transmission Date: 20181010
  Serious: Yes (Other)
  Sender: FDA-Public Use
  Company Number: TH-ASTELLAS-2018US038283

PATIENT
  Age: 14 Year
  Sex: Female

DRUGS (1)
  1. PROGRAF [Suspect]
     Active Substance: TACROLIMUS\TACROLIMUS ANHYDROUS
     Indication: PRODUCT USED FOR UNKNOWN INDICATION
     Dosage: UNK UNK, UNKNOWN FREQ.
     Route: 065

REACTIONS (3)
  - Cerebrovascular disorder [Recovering/Resolving]
  - Hyperammonaemia [Recovering/Resolving]
  - Seizure [Recovering/Resolving]

NARRATIVE: CASE EVENT DATE: 20180208
